FAERS Safety Report 25308726 (Version 6)
Quarter: 2025Q4

REPORT INFORMATION
  Report Type: Spontaneous
  Country: US (occurrence: US)
  Receive Date: 20250513
  Receipt Date: 20251122
  Transmission Date: 20260117
  Serious: No
  Sender: SANOFI AVENTIS
  Company Number: US-SA-2025SA134752

PATIENT
  Age: 58 Year
  Sex: Female

DRUGS (5)
  1. DUPIXENT [Suspect]
     Active Substance: DUPILUMAB
     Indication: Dermatitis atopic
     Dosage: 600 MG, QOW
     Route: 058
     Dates: start: 202504, end: 2025
  2. DUPIXENT [Suspect]
     Active Substance: DUPILUMAB
     Indication: Eczema
     Dosage: 300 MG, QOW
     Route: 058
     Dates: start: 202505
  3. DUPIXENT [Suspect]
     Active Substance: DUPILUMAB
     Dosage: 300 MG, Q4W
     Route: 058
     Dates: start: 202508
  4. DUPIXENT [Suspect]
     Active Substance: DUPILUMAB
     Dosage: 300 MG, QOW
     Route: 058
     Dates: start: 2025, end: 20251012
  5. DUPIXENT [Suspect]
     Active Substance: DUPILUMAB
     Dosage: 300 MG, QOW
     Route: 058
     Dates: start: 20251112

REACTIONS (15)
  - Dermatitis [Recovering/Resolving]
  - Visual impairment [Unknown]
  - Pruritus [Unknown]
  - Sinusitis [Recovered/Resolved]
  - Cough [Recovered/Resolved]
  - Nasal congestion [Recovered/Resolved]
  - Ear pain [Recovered/Resolved]
  - Injection site pain [Unknown]
  - Pain in extremity [Unknown]
  - Condition aggravated [Unknown]
  - Blepharitis [Unknown]
  - Eczema [Unknown]
  - Product dose omission issue [Unknown]
  - Inappropriate schedule of product administration [Unknown]
  - Off label use [Unknown]

NARRATIVE: CASE EVENT DATE: 20250101
